FAERS Safety Report 17690816 (Version 2)
Quarter: 2020Q2

REPORT INFORMATION
  Report Type: Spontaneous
  Country: US (occurrence: US)
  Receive Date: 20200422
  Receipt Date: 20200505
  Transmission Date: 20200714
  Serious: No
  Sender: FDA-Public Use
  Company Number: US-ASTRAZENECA-2020SE51070

PATIENT
  Sex: Female
  Weight: 83.9 kg

DRUGS (3)
  1. ZETAI [Concomitant]
     Indication: STENT PLACEMENT
     Route: 065
  2. NOVOLOG [Concomitant]
     Active Substance: INSULIN ASPART
     Indication: DIABETES MELLITUS
     Route: 065
  3. BYDUREON BCISE [Suspect]
     Active Substance: EXENATIDE
     Indication: TYPE 2 DIABETES MELLITUS
     Dosage: ONCE A WEEK
     Route: 065

REACTIONS (3)
  - Injection site extravasation [Unknown]
  - Appetite disorder [Unknown]
  - Device leakage [Unknown]
